FAERS Safety Report 25611144 (Version 1)
Quarter: 2025Q3

REPORT INFORMATION
  Report Type: Spontaneous
  Country: US (occurrence: US)
  Receive Date: 20250728
  Receipt Date: 20250728
  Transmission Date: 20251020
  Serious: Yes (Hospitalization, Other)
  Sender: AUROBINDO
  Company Number: US-MLMSERVICE-20250710-PI573524-00271-1

PATIENT
  Age: 38 Year
  Sex: Male

DRUGS (1)
  1. PREDNISONE [Suspect]
     Active Substance: PREDNISONE
     Indication: Sarcoidosis
     Dosage: 40 MILLIGRAM, ONCE A DAY
     Route: 065

REACTIONS (2)
  - Diabetic ketoacidosis [Unknown]
  - Type 1 diabetes mellitus [Unknown]
